FAERS Safety Report 7860374-6 (Version None)
Quarter: 2011Q4

REPORT INFORMATION
  Report Type: 
  Country: None (occurrence: None)
  Receive Date: 20111027
  Receipt Date: 20111018
  Transmission Date: 20120403
  Serious: Yes (Hospitalization, Other)
  Sender: FDA-Public Use
  Company Number: PHHY2011FR93126

PATIENT
  Age: 64 Year
  Sex: Male

DRUGS (2)
  1. AFINITOR [Suspect]
     Dosage: 1 DF, QD
     Dates: start: 20110801, end: 20110817
  2. AFINITOR [Suspect]
     Dosage: 1 DF, QD
     Dates: start: 20110707, end: 20110721

REACTIONS (6)
  - PLATELET COUNT DECREASED [None]
  - DIABETES MELLITUS [None]
  - HYPERGLYCAEMIA [None]
  - BLISTER [None]
  - OTITIS EXTERNA [None]
  - CHONDRITIS [None]
